FAERS Safety Report 9472107 (Version 1)
Quarter: 2013Q3

REPORT INFORMATION
  Report Type: Spontaneous
  Country: US (occurrence: US)
  Receive Date: 20130823
  Receipt Date: 20130823
  Transmission Date: 20140515
  Serious: No
  Sender: FDA-Public Use
  Company Number: US-009507513-1308USA008604

PATIENT
  Sex: 0

DRUGS (1)
  1. PROVENTIL [Suspect]
     Dosage: TWO PUFFS, FOUR TIMES DAILY AS NEEDED
     Route: 055
     Dates: start: 20100104

REACTIONS (4)
  - Product quality issue [Unknown]
  - Expired drug administered [Unknown]
  - Drug prescribing error [Unknown]
  - No adverse event [Unknown]
